FAERS Safety Report 5708205-4 (Version None)
Quarter: 2008Q2

REPORT INFORMATION
  Report Type: 
  Country: None (occurrence: None)
  Receive Date: 20080417
  Receipt Date: 20080407
  Transmission Date: 20081010
  Serious: Yes (Other)
  Sender: FDA-Public Use
  Company Number: US-JNJFOC-20080403446

PATIENT
  Sex: Female
  Weight: 78.47 kg

DRUGS (3)
  1. IBUPROFEN [Suspect]
     Indication: PAIN
  2. IBUPROFEN [Suspect]
     Indication: NERVE COMPRESSION
  3. DILANTIN [Concomitant]
     Indication: CONVULSION

REACTIONS (2)
  - DRUG EFFECT DECREASED [None]
  - NEOPLASM [None]
